FAERS Safety Report 6023548-5 (Version None)
Quarter: 2008Q4

REPORT INFORMATION
  Report Type: 
  Country: None (occurrence: None)
  Receive Date: 20081230
  Receipt Date: 20081224
  Transmission Date: 20090506
  Serious: Yes (Hospitalization, Other)
  Sender: FDA-Public Use
  Company Number: PHHY2008JP29158

PATIENT
  Sex: Female
  Weight: 27 kg

DRUGS (8)
  1. NEORAL [Suspect]
     Indication: HENOCH-SCHONLEIN PURPURA
     Dosage: 100 TO 150 MG/DAY
     Route: 048
     Dates: start: 20070410, end: 20070415
  2. STEROIDS NOS [Suspect]
     Indication: HENOCH-SCHONLEIN PURPURA
     Dosage: UNK
     Dates: start: 20070305
  3. PREDONINE [Suspect]
     Indication: HENOCH-SCHONLEIN PURPURA
     Dosage: 40 MG/DAY
     Route: 048
     Dates: start: 20070221
  4. PREDONINE [Suspect]
     Dosage: 20 MG/DAY
     Route: 048
  5. PREDONINE [Concomitant]
     Dosage: 20 MG
     Route: 042
     Dates: start: 20070216, end: 20070220
  6. PERSANTINE [Suspect]
     Indication: HENOCH-SCHONLEIN PURPURA
     Dosage: 75 MG/DAY
     Route: 048
     Dates: start: 20070202
  7. SAIREI-TO [Suspect]
     Indication: HENOCH-SCHONLEIN PURPURA
     Dosage: 6 G/DAY
     Route: 048
     Dates: start: 20070307, end: 20070901
  8. COLONEL [Concomitant]
     Indication: ABDOMINAL SYMPTOM
     Dosage: 1000 MG
     Route: 048
     Dates: start: 20070227, end: 20070415

REACTIONS (15)
  - BLEPHAROSPASM [None]
  - CEREBRAL ATROPHY [None]
  - CONVULSION [None]
  - DEPRESSED LEVEL OF CONSCIOUSNESS [None]
  - EPILEPSY [None]
  - EYE MOVEMENT DISORDER [None]
  - HEADACHE [None]
  - HEMIANOPIA HOMONYMOUS [None]
  - HYPERTENSIVE ENCEPHALOPATHY [None]
  - OEDEMA [None]
  - PUPILLARY REFLEX IMPAIRED [None]
  - TREMOR [None]
  - VISION BLURRED [None]
  - VISUAL FIELD DEFECT [None]
  - VOMITING [None]
